APPROVED DRUG PRODUCT: METHYLENE BLUE
Active Ingredient: METHYLENE BLUE
Strength: 5MG/ML (5MG/ML)
Dosage Form/Route: SOLUTION;INTRAVENOUS
Application: A215636 | Product #003
Applicant: ZYDUS LIFESCIENCES GLOBAL FZE
Approved: Feb 2, 2026 | RLD: No | RS: Yes | Type: RX